FAERS Safety Report 20159039 (Version 5)
Quarter: 2022Q1

REPORT INFORMATION
  Report Type: Report from Study
  Country: US (occurrence: US)
  Receive Date: 20211208
  Receipt Date: 20220118
  Transmission Date: 20220423
  Serious: No
  Sender: FDA-Public Use
  Company Number: US-GILEAD-2021-0560021

PATIENT
  Age: 74 Year
  Sex: Female
  Weight: 63.492 kg

DRUGS (5)
  1. AMBRISENTAN [Suspect]
     Active Substance: AMBRISENTAN
     Indication: Pulmonary arterial hypertension
     Dosage: 5 MG, QD
     Route: 048
     Dates: start: 20211220
  2. AMBRISENTAN [Suspect]
     Active Substance: AMBRISENTAN
     Indication: Pulmonary hypertension
  3. REMODULIN [Suspect]
     Active Substance: TREPROSTINIL
     Indication: Pulmonary arterial hypertension
     Dosage: 0.014 UG/KG CONTINUOUS
     Route: 042
     Dates: start: 20211115
  4. SILDENAFIL [Suspect]
     Active Substance: SILDENAFIL
     Indication: Product used for unknown indication
     Dosage: UNK
     Route: 065
  5. ELIQUIS [Concomitant]
     Active Substance: APIXABAN

REACTIONS (15)
  - Pain [Unknown]
  - Arthralgia [Unknown]
  - Back pain [Unknown]
  - Hypotension [Unknown]
  - Illness [Unknown]
  - Memory impairment [Unknown]
  - Malaise [Unknown]
  - Dyspnoea [Not Recovered/Not Resolved]
  - Hypotension [Unknown]
  - Weight increased [Unknown]
  - Oedema peripheral [Not Recovered/Not Resolved]
  - Epistaxis [Unknown]
  - Gait disturbance [Not Recovered/Not Resolved]
  - Oxygen consumption increased [Not Recovered/Not Resolved]
  - Breath sounds abnormal [Not Recovered/Not Resolved]
